FAERS Safety Report 5779819-0 (Version None)
Quarter: 2008Q2

REPORT INFORMATION
  Report Type: 
  Country: None (occurrence: None)
  Receive Date: 20080620
  Receipt Date: 20080612
  Transmission Date: 20081010
  Serious: Yes (Other)
  Sender: FDA-Public Use
  Company Number: GB-RANBAXY-2008RR-15916

PATIENT

DRUGS (7)
  1. AMOXICILLIN + CLAVULANATE POTASSIUM [Suspect]
     Indication: INFECTION PROPHYLAXIS
     Dosage: 1.2 G, UNK
     Route: 042
     Dates: start: 20080514, end: 20080514
  2. GLYCOPYRROLATE [Suspect]
     Dosage: UNK
     Route: 042
     Dates: start: 20080514, end: 20080514
  3. NEOSTIGMINE [Suspect]
     Dosage: UNK
     Route: 042
     Dates: start: 20080514, end: 20080514
  4. MIDAZOLAM HCL [Concomitant]
  5. PANCURONIUM [Concomitant]
  6. CHLORPHENIRAMINE MALEATE [Concomitant]
     Dosage: 10 MG, UNK
  7. PROPOFOL [Concomitant]

REACTIONS (4)
  - ANAPHYLACTIC REACTION [None]
  - FLUSHING [None]
  - HYPOTENSION [None]
  - OXYGEN SATURATION DECREASED [None]
